FAERS Safety Report 5351370-1 (Version None)
Quarter: 2007Q2

REPORT INFORMATION
  Report Type: 
  Country: None (occurrence: None)
  Receive Date: 20070608
  Receipt Date: 20070531
  Transmission Date: 20071010
  Serious: Yes (Other)
  Sender: FDA-Public Use
  Company Number: US-PFIZER INC-2007045540

PATIENT
  Sex: Female
  Weight: 150 kg

DRUGS (6)
  1. CHANTIX [Interacting]
     Indication: SMOKING CESSATION THERAPY
  2. ALL OTHER NON-THERAPEUTIC PRODUCTS [Suspect]
  3. ALL OTHER NON-THERAPEUTIC PRODUCTS [Interacting]
  4. LORTAB [Suspect]
  5. XANAX [Concomitant]
  6. OXYBUTYNIN CHLORIDE [Concomitant]

REACTIONS (4)
  - DRUG INTERACTION [None]
  - HYPERSENSITIVITY [None]
  - SALIVARY HYPERSECRETION [None]
  - TONGUE OEDEMA [None]
